FAERS Safety Report 8043283-1 (Version None)
Quarter: 2012Q1

REPORT INFORMATION
  Report Type: 
  Country: None (occurrence: None)
  Receive Date: 20120112
  Receipt Date: 20120105
  Transmission Date: 20120608
  Serious: Yes (Hospitalization)
  Sender: FDA-Public Use
  Company Number: US-GLAXOSMITHKLINE-A0917645A

PATIENT
  Age: 47 Year
  Sex: Male
  Weight: 103.2 kg

DRUGS (1)
  1. AVANDIA [Suspect]
     Indication: DIABETES MELLITUS
     Route: 048
     Dates: start: 20000401, end: 20060101

REACTIONS (6)
  - MALAISE [None]
  - HEPATIC ENZYME INCREASED [None]
  - PAIN [None]
  - CORONARY ARTERY DISEASE [None]
  - HYPOAESTHESIA [None]
  - CARDIAC FAILURE CONGESTIVE [None]
